FAERS Safety Report 11500418 (Version 1)
Quarter: 2015Q3

REPORT INFORMATION
  Report Type: Report from Study
  Country: US (occurrence: US)
  Receive Date: 20150914
  Receipt Date: 20150914
  Transmission Date: 20151125
  Serious: Yes (Hospitalization)
  Sender: FDA-Public Use
  Company Number: US-BIOGENIDEC-2015BI122600

PATIENT
  Age: 66 Year
  Sex: Female

DRUGS (1)
  1. TECFIDERA [Suspect]
     Active Substance: DIMETHYL FUMARATE
     Indication: MULTIPLE SCLEROSIS
     Route: 048
     Dates: start: 20140320, end: 201503

REACTIONS (4)
  - Motor dysfunction [Recovered/Resolved]
  - Depressed mood [Recovered/Resolved]
  - Drug ineffective [Recovered/Resolved]
  - Multiple sclerosis [Recovered/Resolved]

NARRATIVE: CASE EVENT DATE: 2014
